FAERS Safety Report 25990683 (Version 1)
Quarter: 2025Q4

REPORT INFORMATION
  Report Type: Spontaneous
  Country: EU (occurrence: EU)
  Receive Date: 20251103
  Receipt Date: 20251103
  Transmission Date: 20260118
  Serious: Yes (Other)
  Sender: PADAGIS
  Company Number: EU-PADAGIS-2025PAD01381

PATIENT

DRUGS (1)
  1. IBUPROFEN [Suspect]
     Active Substance: IBUPROFEN
     Indication: Product used for unknown indication
     Dosage: UNK
     Route: 048

REACTIONS (4)
  - Intentional self-injury [Unknown]
  - Angioedema [Unknown]
  - Urticaria [Unknown]
  - Product use issue [Unknown]
